FAERS Safety Report 7546623-2 (Version None)
Quarter: 2011Q2

REPORT INFORMATION
  Report Type: 
  Country: None (occurrence: None)
  Receive Date: 20110614
  Receipt Date: 20110608
  Transmission Date: 20111010
  Serious: Yes (Death)
  Sender: FDA-Public Use
  Company Number: FR-PFIZER INC-2011124370

PATIENT
  Age: 73 Year
  Sex: Male

DRUGS (3)
  1. ZYVOX [Suspect]
     Indication: ENTEROCOCCUS TEST POSITIVE
  2. FLUCONAZOLE [Suspect]
     Indication: CANDIDIASIS
     Dosage: UNK
     Dates: start: 20110410, end: 20110418
  3. ZYVOX [Suspect]
     Indication: STAPHYLOCOCCUS TEST POSITIVE
     Dosage: UNK
     Dates: start: 20110413, end: 20110418

REACTIONS (1)
  - TRANSAMINASES INCREASED [None]
